FAERS Safety Report 15659064 (Version 1)
Quarter: 2018Q4

REPORT INFORMATION
  Report Type: Spontaneous
  Country: US (occurrence: US)
  Receive Date: 20181127
  Receipt Date: 20181127
  Transmission Date: 20190205
  Serious: Yes (Other)
  Sender: FDA-Public Use
  Company Number: US-SA-2018SA319210

PATIENT
  Age: 51 Year
  Sex: Male
  Weight: 66 kg

DRUGS (1)
  1. FABRAZYME [Suspect]
     Active Substance: AGALSIDASE BETA
     Indication: FABRY^S DISEASE
     Dosage: 1.06 MG/KG, QOW
     Route: 041

REACTIONS (7)
  - Restlessness [Unknown]
  - End stage renal disease [Unknown]
  - Fatigue [Unknown]
  - Restrictive cardiomyopathy [Unknown]
  - Deafness [Unknown]
  - Inappropriate schedule of product administration [Unknown]
  - Myopathy [Unknown]
